FAERS Safety Report 6572871-4 (Version None)
Quarter: 2010Q1

REPORT INFORMATION
  Report Type: 
  Country: None (occurrence: None)
  Receive Date: 20100207
  Receipt Date: 20100129
  Transmission Date: 20100710
  Serious: Yes (Hospitalization)
  Sender: FDA-Public Use
  Company Number: TR-ELI_LILLY_AND_COMPANY-TR201002000198

PATIENT
  Sex: Male

DRUGS (1)
  1. HUMULIN R [Suspect]
     Indication: DIABETES MELLITUS
     Dosage: 15 U, 3/D
     Route: 058
     Dates: start: 20091120

REACTIONS (5)
  - BLOOD GLUCOSE INCREASED [None]
  - DECREASED APPETITE [None]
  - ERECTILE DYSFUNCTION [None]
  - IRRITABILITY [None]
  - STRESS [None]
